FAERS Safety Report 9207591 (Version 2)
Quarter: 2013Q2

REPORT INFORMATION
  Report Type: Spontaneous
  Country: SE (occurrence: SE)
  Receive Date: 20130403
  Receipt Date: 20130506
  Transmission Date: 20140414
  Serious: Yes (Death)
  Sender: FDA-Public Use
  Company Number: SE-ROCHE-1209394

PATIENT
  Age: 41 Year
  Sex: Male

DRUGS (5)
  1. ROACTEMRA [Suspect]
     Indication: ANKYLOSING SPONDYLITIS
     Dosage: STRENGTH 20 MG/ML
     Route: 042
     Dates: start: 20091008, end: 20120704
  2. ENALAPRIL [Concomitant]
     Route: 065
  3. ALENAT [Concomitant]
     Route: 065
  4. LYRICA [Concomitant]
     Route: 065
  5. PREDNISOLON [Concomitant]

REACTIONS (1)
  - Circulatory collapse [Fatal]
